FAERS Safety Report 16688878 (Version 1)
Quarter: 2019Q3

REPORT INFORMATION
  Report Type: Spontaneous
  Country: US (occurrence: US)
  Receive Date: 20190809
  Receipt Date: 20190809
  Transmission Date: 20191004
  Serious: Yes (Other)
  Sender: FDA-Public Use
  Company Number: US-ASTRAZENECA-2019SF12145

PATIENT
  Sex: Female

DRUGS (5)
  1. SYNTHROID [Concomitant]
     Active Substance: LEVOTHYROXINE SODIUM
     Route: 048
  2. CRESTOR [Suspect]
     Active Substance: ROSUVASTATIN CALCIUM
     Indication: C-REACTIVE PROTEIN INCREASED
     Dosage: GENERIC
     Route: 065
     Dates: start: 2019
  3. CRESTOR [Suspect]
     Active Substance: ROSUVASTATIN CALCIUM
     Indication: C-REACTIVE PROTEIN INCREASED
     Route: 048
     Dates: start: 2007
  4. CRESTOR [Suspect]
     Active Substance: ROSUVASTATIN CALCIUM
     Indication: C-REACTIVE PROTEIN INCREASED
     Route: 048
     Dates: start: 2019
  5. VITAMIN D [Concomitant]
     Active Substance: VITAMIN D NOS
     Dosage: 3000 MG IN WINTER 1000 OR 2000 UNITS IN THE SUMMER
     Route: 048

REACTIONS (4)
  - Product dose omission [Unknown]
  - Adverse drug reaction [Unknown]
  - Hepatitis [Unknown]
  - Gastrooesophageal reflux disease [Unknown]

NARRATIVE: CASE EVENT DATE: 2019
